FAERS Safety Report 12370802 (Version 1)
Quarter: 2016Q2

REPORT INFORMATION
  Report Type: Spontaneous
  Country: ZA (occurrence: ZA)
  Receive Date: 20160516
  Receipt Date: 20160516
  Transmission Date: 20160815
  Serious: Yes (Other)
  Sender: FDA-Public Use
  Company Number: ZA-009507513-1604ZAF012970

PATIENT
  Age: 36 Year
  Sex: Female
  Weight: 122 kg

DRUGS (1)
  1. IMPLANON [Suspect]
     Active Substance: ETONOGESTREL
     Dosage: UNK
     Route: 059
     Dates: start: 20160405

REACTIONS (7)
  - Complication of device insertion [Unknown]
  - Vein rupture [Recovered/Resolved]
  - Limb discomfort [Recovered/Resolved]
  - Implant site haemorrhage [Recovered/Resolved]
  - Pain in extremity [Recovered/Resolved]
  - Peripheral swelling [Recovered/Resolved]
  - Contusion [Recovered/Resolved]

NARRATIVE: CASE EVENT DATE: 201604
